FAERS Safety Report 13300391 (Version 1)
Quarter: 2017Q1

REPORT INFORMATION
  Report Type: Report from Study
  Country: None (occurrence: US)
  Receive Date: 20170307
  Receipt Date: 20170307
  Transmission Date: 20170428
  Serious: Yes (Hospitalization, Other)
  Sender: FDA-Public Use
  Company Number: US-ABBVIE-17K-163-1849054-00

PATIENT
  Sex: Female
  Weight: 156.63 kg

DRUGS (8)
  1. SULFASALAZINE. [Concomitant]
     Active Substance: SULFASALAZINE
     Indication: RHEUMATOID ARTHRITIS
  2. HUMIRA [Suspect]
     Active Substance: ADALIMUMAB
     Route: 058
     Dates: start: 201701
  3. PLAQUENIL [Concomitant]
     Active Substance: HYDROXYCHLOROQUINE SULFATE
     Indication: RHEUMATOID ARTHRITIS
  4. ESTROVEN [Concomitant]
     Active Substance: DIETARY SUPPLEMENT
     Indication: MENOPAUSAL SYMPTOMS
  5. METHOTREXATE. [Concomitant]
     Active Substance: METHOTREXATE
     Indication: RHEUMATOID ARTHRITIS
  6. FOLIC ACID. [Concomitant]
     Active Substance: FOLIC ACID
     Indication: MINERAL SUPPLEMENTATION
  7. DIAZEPAM. [Concomitant]
     Active Substance: DIAZEPAM
     Indication: ANXIETY
  8. HUMIRA [Suspect]
     Active Substance: ADALIMUMAB
     Indication: RHEUMATOID ARTHRITIS
     Route: 058
     Dates: start: 2014, end: 201604

REACTIONS (2)
  - Tooth fracture [Recovered/Resolved]
  - Osteoarthritis [Recovering/Resolving]

NARRATIVE: CASE EVENT DATE: 2016
